FAERS Safety Report 5694132-8 (Version None)
Quarter: 2008Q2

REPORT INFORMATION
  Report Type: 
  Country: None (occurrence: None)
  Receive Date: 20080402
  Receipt Date: 20080321
  Transmission Date: 20081010
  Serious: Yes (Other)
  Sender: FDA-Public Use
  Company Number: 025347

PATIENT
  Age: 14 Year
  Sex: Male

DRUGS (2)
  1. CLARAVIS [Suspect]
     Indication: ACNE
     Dosage: 60 MG/DAY, ORAL; 80 MG/DAY, ORAL
     Route: 048
     Dates: start: 20080208, end: 20080320
  2. CLARAVIS [Suspect]
     Indication: ACNE
     Dosage: 60 MG/DAY, ORAL; 80 MG/DAY, ORAL
     Route: 048
     Dates: start: 20071220

REACTIONS (2)
  - ACCIDENT [None]
  - LOWER LIMB FRACTURE [None]
